FAERS Safety Report 5029358-X (Version None)
Quarter: 2006Q2

REPORT INFORMATION
  Report Type: 
  Country: None (occurrence: None)
  Receive Date: 20060614
  Receipt Date: 20060606
  Transmission Date: 20061013
  Serious: No
  Sender: FDA-Public Use
  Company Number: US-2006-014443

PATIENT
  Sex: Female

DRUGS (1)
  1. CLIMARA [Suspect]
     Dosage: 0.045/0.015 MG/D, CONT, TRANSDERMAL
     Route: 062

REACTIONS (2)
  - HORMONE LEVEL ABNORMAL [None]
  - PHARMACEUTICAL PRODUCT COMPLAINT [None]
